FAERS Safety Report 24538854 (Version 1)
Quarter: 2024Q4

REPORT INFORMATION
  Report Type: Spontaneous
  Country: TR (occurrence: TR)
  Receive Date: 20241023
  Receipt Date: 20241023
  Transmission Date: 20250114
  Serious: Yes (Other)
  Sender: SANDOZ
  Company Number: TR-NOVPHSZ-PHHY2019TR093645

PATIENT
  Age: 68 Year
  Sex: Male

DRUGS (3)
  1. MEROPENEM [Suspect]
     Active Substance: MEROPENEM
     Indication: Acute respiratory distress syndrome
     Dosage: 1 DF, TID
     Route: 065
     Dates: start: 20160303
  2. MOXIFLOXACIN [Suspect]
     Active Substance: MOXIFLOXACIN
     Indication: Acute respiratory distress syndrome
     Dosage: 1 DF, QD
     Route: 065
     Dates: start: 20160303
  3. OSELTAMIVIR [Suspect]
     Active Substance: OSELTAMIVIR
     Indication: Acute respiratory distress syndrome
     Dosage: 1 DF, BID
     Route: 065
     Dates: start: 20160303

REACTIONS (2)
  - Increased bronchial secretion [Unknown]
  - Product use in unapproved indication [Unknown]

NARRATIVE: CASE EVENT DATE: 20160316
